FAERS Safety Report 8268025-6 (Version None)
Quarter: 2012Q2

REPORT INFORMATION
  Report Type: 
  Country: None (occurrence: None)
  Receive Date: 20120409
  Receipt Date: 20120403
  Transmission Date: 20120825
  Serious: Yes (Other)
  Sender: FDA-Public Use
  Company Number: GB-ASTRAZENECA-2012SE22057

PATIENT
  Age: 66 Year
  Sex: Male

DRUGS (2)
  1. SYMBICORT [Suspect]
     Dosage: UNKNOWN STRENGTH AND FREQUENCY
     Route: 055
  2. TIOTROPIUM BROMIDE [Concomitant]

REACTIONS (2)
  - AGGRESSION [None]
  - SLEEP DISORDER [None]
